FAERS Safety Report 11391742 (Version 1)
Quarter: 2015Q3

REPORT INFORMATION
  Report Type: Spontaneous
  Country: US (occurrence: None)
  Receive Date: 20150814
  Receipt Date: 20150814
  Transmission Date: 20151125
  Serious: Yes (Other)
  Sender: FDA-Public Use
  Company Number: ADR-2015-01536

PATIENT
  Age: 15 Year
  Sex: Male

DRUGS (2)
  1. LIORESAL [Suspect]
     Active Substance: BACLOFEN
     Indication: MUSCLE SPASTICITY
     Dosage: 857 MCG/DAY
  2. MORPHINE INTRATHECAL [Suspect]
     Active Substance: MORPHINE

REACTIONS (8)
  - Arthropathy [None]
  - Decubitus ulcer [None]
  - Upper limb fracture [None]
  - Muscle rigidity [None]
  - Muscle spasticity [None]
  - Pain [None]
  - Condition aggravated [None]
  - Joint dislocation [None]
